FAERS Safety Report 11677191 (Version 2)
Quarter: 2016Q1

REPORT INFORMATION
  Report Type: Spontaneous
  Country: US (occurrence: US)
  Receive Date: 20151028
  Receipt Date: 20160315
  Transmission Date: 20160525
  Serious: Yes (Other)
  Sender: FDA-Public Use
  Company Number: US-ASTRAZENECA-2014SE67277

PATIENT
  Age: 35 Year
  Sex: Female
  Weight: 122.5 kg

DRUGS (22)
  1. GLIPIZIDE. [Concomitant]
     Active Substance: GLIPIZIDE
     Dates: start: 20110707
  2. PRILOSEC [Concomitant]
     Active Substance: OMEPRAZOLE MAGNESIUM
     Dates: start: 20110707
  3. METFORMIN [Concomitant]
     Active Substance: METFORMIN HYDROCHLORIDE
     Route: 048
     Dates: start: 20120111
  4. GABAPENTIN. [Concomitant]
     Active Substance: GABAPENTIN
     Route: 048
  5. ATORVASTATIN [Concomitant]
     Active Substance: ATORVASTATIN
     Route: 048
  6. VALIUM [Concomitant]
     Active Substance: DIAZEPAM
     Route: 048
  7. BYETTA [Suspect]
     Active Substance: EXENATIDE
     Indication: TYPE 2 DIABETES MELLITUS
     Route: 065
     Dates: start: 2011, end: 2011
  8. PHENAZOPYRIDINE. [Concomitant]
     Active Substance: PHENAZOPYRIDINE
     Route: 048
     Dates: start: 20040107
  9. KETOROLAC [Concomitant]
     Active Substance: KETOROLAC\KETOROLAC TROMETHAMINE
     Route: 048
     Dates: start: 20051029
  10. OXCARBAZEPINE. [Concomitant]
     Active Substance: OXCARBAZEPINE
     Dates: start: 20150923
  11. LOSARTAN. [Concomitant]
     Active Substance: LOSARTAN
     Dates: start: 20151011
  12. METHOCARBAMOL. [Concomitant]
     Active Substance: METHOCARBAMOL
     Route: 048
  13. TOPIRAMATE. [Concomitant]
     Active Substance: TOPIRAMATE
     Route: 048
  14. AMITIZA [Concomitant]
     Active Substance: LUBIPROSTONE
  15. LORATADINE. [Concomitant]
     Active Substance: LORATADINE
  16. OMEPRAZOLE. [Concomitant]
     Active Substance: OMEPRAZOLE
  17. BYETTA [Suspect]
     Active Substance: EXENATIDE
     Indication: TYPE 2 DIABETES MELLITUS
     Route: 058
     Dates: start: 20110707
  18. LOVAZA [Concomitant]
     Active Substance: OMEGA-3-ACID ETHYL ESTERS
     Dosage: DAILY
     Dates: start: 20110707
  19. JANUMET [Concomitant]
     Active Substance: METFORMIN HYDROCHLORIDE\SITAGLIPTIN PHOSPHATE
     Dosage: 50/1000, TWO TIMES A DAY
     Dates: start: 20101123
  20. MAXALT [Concomitant]
     Active Substance: RIZATRIPTAN BENZOATE
     Route: 048
  21. BYETTA [Suspect]
     Active Substance: EXENATIDE
     Indication: TYPE 2 DIABETES MELLITUS
     Dosage: 5MCG/O.02 INJ
     Route: 065
     Dates: start: 20110617
  22. LISINOPRIL. [Concomitant]
     Active Substance: LISINOPRIL
     Dates: start: 20110707

REACTIONS (3)
  - Papillary thyroid cancer [Unknown]
  - Goitre [Unknown]
  - Hypothyroidism [Unknown]

NARRATIVE: CASE EVENT DATE: 2011
